FAERS Safety Report 14894116 (Version 2)
Quarter: 2018Q2

REPORT INFORMATION
  Report Type: Spontaneous
  Country: US (occurrence: US)
  Receive Date: 20180514
  Receipt Date: 20180516
  Transmission Date: 20180711
  Serious: No
  Sender: FDA-Public Use
  Company Number: US-BIOGEN-2018BI00569628

PATIENT
  Age: 35 Year
  Sex: Male

DRUGS (1)
  1. TECFIDERA [Suspect]
     Active Substance: DIMETHYL FUMARATE
     Indication: MULTIPLE SCLEROSIS
     Route: 065
     Dates: start: 20150204

REACTIONS (9)
  - Contusion [Not Recovered/Not Resolved]
  - Muscle tightness [Recovered/Resolved]
  - Musculoskeletal stiffness [Recovered/Resolved]
  - Pain in extremity [Recovered/Resolved]
  - Headache [Unknown]
  - Micturition urgency [Recovered/Resolved]
  - Anxiety [Not Recovered/Not Resolved]
  - Skin mass [Not Recovered/Not Resolved]
  - Nocturia [Recovered/Resolved]

NARRATIVE: CASE EVENT DATE: 201804
